FAERS Safety Report 5204721-2 (Version None)
Quarter: 2007Q1

REPORT INFORMATION
  Report Type: 
  Country: None (occurrence: None)
  Receive Date: 20070110
  Receipt Date: 20060801
  Transmission Date: 20070707
  Serious: Yes (Other)
  Sender: FDA-Public Use
  Company Number: US-BRISTOL-MYERS SQUIBB COMPANY-13424312

PATIENT
  Age: 25 Year
  Sex: Female

DRUGS (3)
  1. ABILIFY [Suspect]
     Indication: BIPOLAR I DISORDER
     Route: 048
  2. EFFEXOR XR [Concomitant]
  3. LAMICTAL [Concomitant]

REACTIONS (1)
  - PREGNANCY [None]
